FAERS Safety Report 6995978-6 (Version None)
Quarter: 2010Q3

REPORT INFORMATION
  Report Type: 
  Country: None (occurrence: None)
  Receive Date: 20100918
  Receipt Date: 20081212
  Transmission Date: 20110219
  Serious: No
  Sender: FDA-Public Use
  Company Number: US-WYE-H07217308

PATIENT
  Sex: Male
  Weight: 108.96 kg

DRUGS (3)
  1. EFFEXOR XR [Suspect]
     Indication: ANXIETY
     Route: 048
     Dates: start: 20060101, end: 20081208
  2. EFFEXOR XR [Suspect]
     Route: 048
     Dates: start: 20081209
  3. KLONOPIN [Concomitant]

REACTIONS (6)
  - DIZZINESS [None]
  - DRUG WITHDRAWAL SYNDROME [None]
  - DRY MOUTH [None]
  - LABILE BLOOD PRESSURE [None]
  - NIGHTMARE [None]
  - PARAESTHESIA [None]
